FAERS Safety Report 7973020-8 (Version None)
Quarter: 2011Q4

REPORT INFORMATION
  Report Type: 
  Country: None (occurrence: None)
  Receive Date: 20111213
  Receipt Date: 20111206
  Transmission Date: 20120403
  Serious: Yes (Other)
  Sender: FDA-Public Use
  Company Number: US-BRISTOL-MYERS SQUIBB COMPANY-16276115

PATIENT
  Age: 15 Year
  Sex: Female

DRUGS (1)
  1. REYATAZ [Suspect]

REACTIONS (3)
  - BLOOD BILIRUBIN INCREASED [None]
  - WEIGHT DECREASED [None]
  - VOMITING [None]
